FAERS Safety Report 12008804 (Version 1)
Quarter: 2016Q1

REPORT INFORMATION
  Report Type: Report from Study
  Country: US (occurrence: US)
  Receive Date: 20160205
  Receipt Date: 20160205
  Transmission Date: 20160526
  Serious: No
  Sender: FDA-Public Use
  Company Number: US-ABBVIE-15K-163-1445731-00

PATIENT
  Age: 16 Year
  Sex: Female

DRUGS (3)
  1. HUMIRA [Suspect]
     Active Substance: ADALIMUMAB
     Indication: CROHN^S DISEASE
     Dosage: DAY ONE
     Route: 065
     Dates: start: 20150720, end: 20150720
  2. HUMIRA [Suspect]
     Active Substance: ADALIMUMAB
     Dosage: DAY 15
     Route: 065
     Dates: start: 20150803
  3. AZATHIOPRINE. [Concomitant]
     Active Substance: AZATHIOPRINE
     Indication: PRODUCT USED FOR UNKNOWN INDICATION
     Route: 048
     Dates: start: 20150720

REACTIONS (1)
  - Drug ineffective [Not Recovered/Not Resolved]

NARRATIVE: CASE EVENT DATE: 20150720
